FAERS Safety Report 14280964 (Version 3)
Quarter: 2018Q1

REPORT INFORMATION
  Report Type: Spontaneous
  Country: US (occurrence: US)
  Receive Date: 20171213
  Receipt Date: 20180111
  Transmission Date: 20180508
  Serious: No
  Sender: FDA-Public Use
  Company Number: US-GLAXOSMITHKLINE-US2017191194

PATIENT
  Age: 52 Year
  Sex: Female
  Weight: 91.4 kg

DRUGS (1)
  1. TANZEUM [Suspect]
     Active Substance: ALBIGLUTIDE
     Indication: DIABETES MELLITUS
     Dosage: 50 MG, WE
     Route: 058
     Dates: start: 201710

REACTIONS (3)
  - Drug dose omission [Unknown]
  - Intercepted drug dispensing error [Unknown]
  - Intercepted drug administration error [Recovered/Resolved]

NARRATIVE: CASE EVENT DATE: 20171204
